FAERS Safety Report 6269137-9 (Version None)
Quarter: 2009Q3

REPORT INFORMATION
  Report Type: 
  Country: None (occurrence: None)
  Receive Date: 20090706
  Receipt Date: 20090323
  Transmission Date: 20100115
  Serious: Yes (Other)
  Sender: FDA-Public Use
  Company Number: 2009020025

PATIENT
  Age: 32 Year
  Sex: Female

DRUGS (2)
  1. RHOPHYLAC [Suspect]
     Indication: ABDOMINAL INJURY
     Dosage: 200 UG
     Route: 030
     Dates: start: 20090321, end: 20090321
  2. RHOPHYLAC [Suspect]
     Indication: PROPHYLAXIS AGAINST RH ISOIMMUNISATION
     Dosage: 200 UG
     Route: 030
     Dates: start: 20090321, end: 20090321

REACTIONS (4)
  - DRUG EXPOSURE DURING PREGNANCY [None]
  - PRURITUS [None]
  - RASH [None]
  - RASH PAPULAR [None]
